FAERS Safety Report 6965724-0 (Version None)
Quarter: 2010Q3

REPORT INFORMATION
  Report Type: 
  Country: None (occurrence: None)
  Receive Date: 20100903
  Receipt Date: 20100825
  Transmission Date: 20110219
  Serious: Yes (Other)
  Sender: FDA-Public Use
  Company Number: JP-ROCHE-724564

PATIENT
  Sex: Female

DRUGS (4)
  1. XELODA [Suspect]
     Indication: COLON CANCER
     Route: 048
     Dates: start: 20080929, end: 20081012
  2. XELODA [Suspect]
     Route: 048
     Dates: start: 20081020, end: 20081102
  3. LOXONIN [Concomitant]
     Route: 048
  4. PYRIDOXAL CALCIUM PHOSPHATE [Concomitant]
     Route: 048
     Dates: start: 20080929, end: 20081012

REACTIONS (1)
  - PALMAR-PLANTAR ERYTHRODYSAESTHESIA SYNDROME [None]
